FAERS Safety Report 14028218 (Version 1)
Quarter: 2017Q4

REPORT INFORMATION
  Report Type: Spontaneous
  Country: US (occurrence: US)
  Receive Date: 20171001
  Receipt Date: 20171001
  Transmission Date: 20180321
  Serious: Yes (Death, Hospitalization)
  Sender: FDA-Public Use
  Company Number: None

PATIENT
  Sex: Male
  Weight: 63 kg

DRUGS (3)
  1. TRAMADOL HCL 50 MG TABLETS [Suspect]
     Active Substance: TRAMADOL HYDROCHLORIDE
     Indication: PAIN
     Route: 048
     Dates: start: 20160718, end: 20170727
  2. TRAMADOL HCL 50 MG TABLETS [Suspect]
     Active Substance: TRAMADOL HYDROCHLORIDE
     Indication: LIMB INJURY
     Route: 048
     Dates: start: 20160718, end: 20170727
  3. ADDERALL [Concomitant]
     Active Substance: AMPHETAMINE ASPARTATE\AMPHETAMINE SULFATE\DEXTROAMPHETAMINE SACCHARATE\DEXTROAMPHETAMINE SULFATE

REACTIONS (5)
  - Depression [None]
  - Wrong technique in product usage process [None]
  - Completed suicide [None]
  - Alcohol abuse [None]
  - Seizure [None]
